FAERS Safety Report 5577584-3 (Version None)
Quarter: 2007Q4

REPORT INFORMATION
  Report Type: 
  Country: None (occurrence: None)
  Receive Date: 20071130
  Receipt Date: 20070927
  Transmission Date: 20080405
  Serious: No
  Sender: FDA-Public Use
  Company Number: US200709005103

PATIENT
  Age: 68 Year
  Sex: Female

DRUGS (4)
  1. BYETTA [Suspect]
     Indication: TYPE 2 DIABETES MELLITUS
     Dosage: 5 UG, 2/D, SUBCUTANEOUS
     Route: 058
     Dates: start: 20070919
  2. PRANDIN /USA/ (REPAGLINIDE) [Concomitant]
  3. METFORMIN HCL [Concomitant]
  4. DRUG USED IN DIABETES [Concomitant]

REACTIONS (4)
  - BLOOD GLUCOSE INCREASED [None]
  - DRUG INEFFECTIVE [None]
  - FEELING HOT [None]
  - HYPERHIDROSIS [None]
